FAERS Safety Report 12165928 (Version 3)
Quarter: 2016Q2

REPORT INFORMATION
  Report Type: Report from Study
  Country: None (occurrence: US)
  Receive Date: 20160309
  Receipt Date: 20160624
  Transmission Date: 20160815
  Serious: Yes (Death, Hospitalization)
  Sender: FDA-Public Use
  Company Number: US-TAIHO ONCOLOGY INC-EU-2016-00353

PATIENT
  Age: 30 Year
  Sex: Female

DRUGS (5)
  1. FENTORA [Concomitant]
     Active Substance: FENTANYL CITRATE
     Dosage: NI
  2. LANTUS [Concomitant]
     Active Substance: INSULIN GLARGINE
     Dosage: NI
  3. LIDOCAINE. [Concomitant]
     Active Substance: LIDOCAINE
     Dosage: NI
  4. FENTANYL. [Concomitant]
     Active Substance: FENTANYL
     Dosage: NI
  5. LONSURF [Suspect]
     Active Substance: TIPIRACIL HYDROCHLORIDE\TRIFLURIDINE
     Indication: NEOPLASM MALIGNANT
     Dosage: COMPLETED CYCLE 2
     Route: 048
     Dates: start: 20151015

REACTIONS (2)
  - Small intestinal obstruction [Fatal]
  - Pain [Unknown]

NARRATIVE: CASE EVENT DATE: 20151218
